FAERS Safety Report 8355434-X (Version None)
Quarter: 2012Q2

REPORT INFORMATION
  Report Type: 
  Country: None (occurrence: None)
  Receive Date: 20120511
  Receipt Date: 20120504
  Transmission Date: 20120825
  Serious: Yes (Hospitalization)
  Sender: FDA-Public Use
  Company Number: ZA-BAXTER-2012BAX004840

PATIENT
  Sex: Male

DRUGS (3)
  1. UROMITEXAN 5G/5OML [Suspect]
     Indication: SYNOVIAL SARCOMA
     Route: 042
  2. ADRIAMYCIN PFS [Suspect]
     Indication: CHEMOTHERAPY
     Route: 065
  3. HOLOXAN VIAL 2G [Suspect]
     Indication: SYNOVIAL SARCOMA
     Route: 042

REACTIONS (1)
  - HAEMATURIA [None]
